FAERS Safety Report 9549030 (Version 2)
Quarter: 2013Q4

REPORT INFORMATION
  Report Type: Report from Study
  Country: CA (occurrence: CA)
  Receive Date: 20130924
  Receipt Date: 20131001
  Transmission Date: 20140711
  Serious: Yes (Other)
  Sender: FDA-Public Use
  Company Number: CA-ABBVIE-13P-028-1148571-00

PATIENT
  Age: 44 Year
  Sex: Male
  Weight: 113.5 kg

DRUGS (2)
  1. HUMIRA [Suspect]
     Indication: PSORIATIC ARTHROPATHY
     Route: 058
     Dates: start: 20090623, end: 20120719
  2. CYCLOSPORINE [Suspect]
     Indication: PSORIASIS
     Route: 048
     Dates: start: 20111004, end: 20120719

REACTIONS (7)
  - Toxicity to various agents [Unknown]
  - Interstitial lung disease [Recovering/Resolving]
  - Productive cough [Unknown]
  - Haemoptysis [Unknown]
  - Dyspnoea [Unknown]
  - Infection [Unknown]
  - Psoriasis [Unknown]
